FAERS Safety Report 4650840-9 (Version None)
Quarter: 2005Q2

REPORT INFORMATION
  Report Type: 
  Country: None (occurrence: None)
  Receive Date: 20050503
  Receipt Date: 20050419
  Transmission Date: 20051028
  Serious: Yes (Hospitalization)
  Sender: FDA-Public Use
  Company Number: FRWYE598719APR05

PATIENT
  Age: 45 Year
  Sex: Female

DRUGS (2)
  1. ENBREL [Suspect]
     Indication: RHEUMATOID ARTHRITIS
     Dates: start: 20031001
  2. CORTICOSTEROID NOS [Suspect]
     Dosage: UNKNOWN
     Dates: start: 20031001, end: 20040601

REACTIONS (4)
  - CONDITION AGGRAVATED [None]
  - FURUNCLE [None]
  - HIDRADENITIS [None]
  - UVEITIS [None]
